FAERS Safety Report 5076658-3 (Version None)
Quarter: 2006Q3

REPORT INFORMATION
  Report Type: 
  Country: None (occurrence: None)
  Receive Date: 20060810
  Receipt Date: 20060628
  Transmission Date: 20061208
  Serious: Yes (Hospitalization)
  Sender: FDA-Public Use
  Company Number: FR-AVENTIS-200616768GDDC

PATIENT
  Sex: Female

DRUGS (1)
  1. MINIRIN [Suspect]
     Indication: ENURESIS
     Route: 055

REACTIONS (1)
  - CONVULSION [None]
